FAERS Safety Report 19632568 (Version 3)
Quarter: 2021Q4

REPORT INFORMATION
  Report Type: Report from Study
  Country: US (occurrence: US)
  Receive Date: 20210728
  Receipt Date: 20211230
  Transmission Date: 20220304
  Serious: Yes (Hospitalization, Other)
  Sender: FDA-Public Use
  Company Number: US-ABBVIE-21K-163-3930114-00

PATIENT
  Sex: Female
  Weight: 65.376 kg

DRUGS (17)
  1. IMBRUVICA [Suspect]
     Active Substance: IBRUTINIB
     Indication: Lymphocytic leukaemia
     Route: 048
     Dates: start: 20200901, end: 202105
  2. IMBRUVICA [Suspect]
     Active Substance: IBRUTINIB
     Indication: Chronic lymphocytic leukaemia
     Route: 048
     Dates: start: 202105
  3. IMBRUVICA [Suspect]
     Active Substance: IBRUTINIB
     Route: 048
  4. IMBRUVICA [Suspect]
     Active Substance: IBRUTINIB
     Route: 048
  5. PREDNISONE [Suspect]
     Active Substance: PREDNISONE
     Indication: Cold type haemolytic anaemia
     Route: 065
     Dates: start: 202104
  6. PREDNISONE [Suspect]
     Active Substance: PREDNISONE
     Indication: COVID-19
  7. PREDNISONE [Suspect]
     Active Substance: PREDNISONE
     Indication: Pyrexia
  8. PREDNISONE [Suspect]
     Active Substance: PREDNISONE
     Indication: Cough
  9. PREDNISONE [Suspect]
     Active Substance: PREDNISONE
     Indication: Fatigue
  10. PREDNISONE [Suspect]
     Active Substance: PREDNISONE
     Indication: Dyspnoea
  11. SOTALOL [Concomitant]
     Active Substance: SOTALOL
     Indication: Atrial fibrillation
  12. SOTALOL [Concomitant]
     Active Substance: SOTALOL
     Indication: Arrhythmia prophylaxis
  13. XARELTO [Concomitant]
     Active Substance: RIVAROXABAN
     Indication: Thrombosis
  14. PFIZER-BIONTECH COVID-19 VACCINE [Concomitant]
     Active Substance: TOZINAMERAN
     Indication: COVID-19 immunisation
     Dosage: PFIZER
     Route: 030
     Dates: start: 202101, end: 202101
  15. PFIZER-BIONTECH COVID-19 VACCINE [Concomitant]
     Active Substance: TOZINAMERAN
     Dosage: PFIZER
     Route: 030
     Dates: start: 202102, end: 202102
  16. PFIZER-BIONTECH COVID-19 VACCINE [Concomitant]
     Active Substance: TOZINAMERAN
     Dosage: BOOSTER SHOT
     Route: 030
     Dates: start: 202111, end: 202111
  17. FOSAMAX [Concomitant]
     Active Substance: ALENDRONATE SODIUM
     Indication: Prophylaxis

REACTIONS (13)
  - Haemolytic anaemia [Unknown]
  - Atrial fibrillation [Recovering/Resolving]
  - Tremor [Not Recovered/Not Resolved]
  - Fluid intake reduced [Unknown]
  - Full blood count abnormal [Not Recovered/Not Resolved]
  - Joint swelling [Not Recovered/Not Resolved]
  - Muscle spasms [Unknown]
  - Stomatitis [Not Recovered/Not Resolved]
  - Drug ineffective [Not Recovered/Not Resolved]
  - COVID-19 [Recovered/Resolved]
  - Memory impairment [Unknown]
  - Rash macular [Not Recovered/Not Resolved]
  - Petechiae [Unknown]

NARRATIVE: CASE EVENT DATE: 20210101
